FAERS Safety Report 7899233 (Version 3)
Quarter: 2013Q4

REPORT INFORMATION
  Report Type: Spontaneous
  Country: US (occurrence: US)
  Receive Date: 20110414
  Receipt Date: 20131002
  Transmission Date: 20140711
  Serious: Yes (Other)
  Sender: FDA-Public Use
  Company Number: US-ASTRAZENECA-2011SE19696

PATIENT
  Age: 53 Year
  Sex: Male

DRUGS (4)
  1. ZOMIG [Suspect]
     Indication: MIGRAINE
     Route: 048
  2. ZOMIG [Suspect]
     Indication: MIGRAINE
     Route: 048
  3. ZOMIG [Suspect]
     Indication: MIGRAINE
     Route: 048
  4. ZOMIG [Suspect]
     Indication: MIGRAINE
     Route: 045

REACTIONS (6)
  - Convulsion [Unknown]
  - Headache [Unknown]
  - Feeling abnormal [Unknown]
  - Drug intolerance [Unknown]
  - Wrong patient received medication [Unknown]
  - Drug effect decreased [Unknown]
